FAERS Safety Report 8518739-5 (Version None)
Quarter: 2012Q3

REPORT INFORMATION
  Report Type: 
  Country: None (occurrence: None)
  Receive Date: 20120718
  Receipt Date: 20120711
  Transmission Date: 20120928
  Serious: Yes (Hospitalization, Other)
  Sender: FDA-Public Use
  Company Number: PHHY2012BR060591

PATIENT
  Sex: Female
  Weight: 70 kg

DRUGS (7)
  1. LESCOL XL [Suspect]
     Indication: BLOOD CHOLESTEROL
     Dosage: UNK UKN, QW3
  2. LEVOTHYROXINE SODIUM [Concomitant]
     Indication: THYROID DISORDER
     Dosage: 1 DF, QD
  3. COUMADIN [Concomitant]
     Indication: BLOOD DISORDER
     Dosage: 1 DF, QD
  4. METOPROLOL SUCCINATE [Concomitant]
     Indication: CARDIAC DISORDER
     Dosage: 1 DF, QD
  5. CALCIUM W/VITAMIN D NOS [Concomitant]
     Dosage: 1 TABLET AT MORNING AND 1 TABLET AT NIGHT
  6. OMEPRAZOLE [Concomitant]
     Dosage: 1 DF, QD
  7. LORAX [Concomitant]
     Indication: SLEEP DISORDER
     Dosage: 1 DF, QHS

REACTIONS (4)
  - THROMBOSIS [None]
  - CEREBROVASCULAR ACCIDENT [None]
  - URINARY TRACT INFLAMMATION [None]
  - URINARY INCONTINENCE [None]
